FAERS Safety Report 18953203 (Version 1)
Quarter: 2021Q1

REPORT INFORMATION
  Report Type: Spontaneous
  Country: US (occurrence: US)
  Receive Date: 20210227
  Receipt Date: 20210227
  Transmission Date: 20210420
  Serious: Yes (Disabling)
  Sender: FDA-Public Use
  Company Number: None

PATIENT
  Age: 40 Year
  Sex: Male
  Weight: 57 kg

DRUGS (1)
  1. MINOXIDIL TOPICAL SOLUTION USP 5% [Suspect]
     Active Substance: MINOXIDIL
     Indication: ALOPECIA
     Dosage: ?          QUANTITY:1 TEASPOON(S);?
     Route: 061
     Dates: start: 20050505, end: 20141201

REACTIONS (13)
  - Food intolerance [None]
  - Head discomfort [None]
  - Loss of personal independence in daily activities [None]
  - Loss of employment [None]
  - Temperature intolerance [None]
  - Thinking abnormal [None]
  - Musculoskeletal discomfort [None]
  - Body temperature decreased [None]
  - Tachycardia [None]
  - Adverse food reaction [None]
  - Somnolence [None]
  - Muscular weakness [None]
  - Coma [None]

NARRATIVE: CASE EVENT DATE: 20101010
